FAERS Safety Report 4394381-5 (Version None)
Quarter: 2004Q3

REPORT INFORMATION
  Report Type: 
  Country: None (occurrence: None)
  Receive Date: 20040709
  Receipt Date: 20040709
  Transmission Date: 20050211
  Serious: Yes (Life-Threatening, Hospitalization)
  Sender: FDA-Public Use
  Company Number: None

PATIENT
  Sex: Female
  Weight: 81.6475 kg

DRUGS (4)
  1. REMERON [Suspect]
     Indication: ANXIETY
     Dates: start: 20040101, end: 20040404
  2. REMERON [Suspect]
     Indication: DEPRESSION
     Dates: start: 20040101, end: 20040404
  3. REMERON [Suspect]
     Indication: POST-TRAUMATIC STRESS DISORDER
     Dates: start: 20040101, end: 20040404
  4. EFFEXOR [Suspect]
     Dates: start: 20040101, end: 20040404

REACTIONS (8)
  - BIPOLAR DISORDER [None]
  - DEPRESSION SUICIDAL [None]
  - HALLUCINATION, AUDITORY [None]
  - HALLUCINATION, GUSTATORY [None]
  - LOSS OF CONSCIOUSNESS [None]
  - PARANOIA [None]
  - PSYCHOTIC DISORDER [None]
  - TEMPORAL LOBE EPILEPSY [None]
